FAERS Safety Report 8347579-5 (Version None)
Quarter: 2012Q2

REPORT INFORMATION
  Report Type: 
  Country: None (occurrence: None)
  Receive Date: 20120509
  Receipt Date: 20120425
  Transmission Date: 20120825
  Serious: Yes (Death, Life-Threatening, Hospitalization, Other)
  Sender: FDA-Public Use
  Company Number: US-MYLANLABS-2009AC000420

PATIENT
  Age: 76 Year
  Sex: Female
  Weight: 64.41 kg

DRUGS (26)
  1. MACROBID [Concomitant]
  2. OXAZEPAM [Concomitant]
  3. COUMADIN [Concomitant]
  4. ENDURONYL [Concomitant]
  5. ASPIRIN [Concomitant]
  6. LANTUS [Concomitant]
  7. HYDROCHLOROTHIAZIDE [Concomitant]
  8. METFORMIN HCL [Concomitant]
  9. GLYBURIDE [Concomitant]
  10. ZESTRIL [Concomitant]
  11. VITAMIN D [Concomitant]
  12. FUROSEMIDE [Concomitant]
  13. ZELNORM [Concomitant]
  14. PRINIVIL [Concomitant]
  15. VIT. E [Concomitant]
  16. PERCOCET [Concomitant]
  17. AVAPRO [Concomitant]
  18. DIGOXIN [Suspect]
     Indication: HEART RATE IRREGULAR
     Route: 048
     Dates: start: 20040218, end: 20070814
  19. B2 ELITE [Concomitant]
  20. EVISTA [Concomitant]
  21. GLUCOPHAGE [Concomitant]
  22. LASIX [Concomitant]
  23. PREVACID [Concomitant]
  24. LISINOPRIL [Concomitant]
  25. MONOPRIL [Concomitant]
  26. NEXIUM [Concomitant]

REACTIONS (58)
  - DIABETES MELLITUS [None]
  - ATRIAL FIBRILLATION [None]
  - PEPTIC ULCER [None]
  - HYPERSENSITIVITY [None]
  - DYSPNOEA [None]
  - MITRAL VALVE INCOMPETENCE [None]
  - ECCHYMOSIS [None]
  - OESOPHAGEAL PAIN [None]
  - SINUS CONGESTION [None]
  - WAIST CIRCUMFERENCE INCREASED [None]
  - PAIN [None]
  - HYPERTENSION [None]
  - HYPERLIPIDAEMIA [None]
  - NEPHRECTOMY [None]
  - ATRIOVENTRICULAR BLOCK COMPLETE [None]
  - CARDIAC VALVE DISEASE [None]
  - RESPIRATORY ARREST [None]
  - CYSTOCELE [None]
  - ECHOCARDIOGRAM ABNORMAL [None]
  - OSTEOPENIA [None]
  - TRANSFUSION [None]
  - CARDIAC FAILURE CONGESTIVE [None]
  - CARDIOMEGALY [None]
  - CONSTIPATION [None]
  - DYSPEPSIA [None]
  - GASTROOESOPHAGEAL REFLUX DISEASE [None]
  - HAEMORRHOID OPERATION [None]
  - RENAL MASS [None]
  - VOMITING [None]
  - DEATH [None]
  - BRADYCARDIA [None]
  - EMOTIONAL DISTRESS [None]
  - OSTEOARTHRITIS [None]
  - PERICARDIAL EFFUSION [None]
  - CARDIOMYOPATHY [None]
  - CARDIAC MURMUR [None]
  - CATHETERISATION CARDIAC ABNORMAL [None]
  - COMPUTERISED TOMOGRAM ABNORMAL [None]
  - URINARY TRACT INFECTION [None]
  - ABDOMINAL PAIN [None]
  - HAEMATURIA [None]
  - KYPHOSIS [None]
  - NAUSEA [None]
  - OEDEMA PERIPHERAL [None]
  - FATIGUE [None]
  - IRRITABLE BOWEL SYNDROME [None]
  - BACK INJURY [None]
  - COSTOVERTEBRAL ANGLE TENDERNESS [None]
  - HAEMATOCRIT DECREASED [None]
  - HAEMORRHOIDS [None]
  - RENAL CYST [None]
  - TOXICITY TO VARIOUS AGENTS [None]
  - POSTOPERATIVE ILEUS [None]
  - RENAL CELL CARCINOMA [None]
  - BREAST TENDERNESS [None]
  - CHEST X-RAY ABNORMAL [None]
  - CHEST PAIN [None]
  - EPISTAXIS [None]
